FAERS Safety Report 8128483-4 (Version None)
Quarter: 2011Q4

REPORT INFORMATION
  Report Type: 
  Country: None (occurrence: None)
  Receive Date: 20111227
  Receipt Date: 20111020
  Transmission Date: 20120403
  Serious: No
  Sender: FDA-Public Use
  Company Number: PHEH2011US07535

PATIENT
  Age: 32 Year
  Sex: Female
  Weight: 83 kg

DRUGS (3)
  1. IRON (IRON) [Concomitant]
  2. GILENYA [Suspect]
     Dosage: 0.5 MG, QD, ORAL
     Route: 048
     Dates: start: 20110620
  3. DROSPIRENONE W/ETHINYLESTRADIOL (DROSPIRENONE, ETHINYLESTRADIOL) [Concomitant]

REACTIONS (2)
  - WEIGHT FLUCTUATION [None]
  - APPETITE DISORDER [None]
